FAERS Safety Report 18022242 (Version 1)
Quarter: 2020Q3

REPORT INFORMATION
  Report Type: Spontaneous
  Country: US (occurrence: US)
  Receive Date: 20200714
  Receipt Date: 20200714
  Transmission Date: 20201103
  Serious: Yes (Death, Hospitalization, Other)
  Sender: FDA-Public Use
  Company Number: US-PURDUE-USA-2020-0156897

PATIENT
  Age: 30 Year
  Sex: Male

DRUGS (2)
  1. VICODIN [Suspect]
     Active Substance: ACETAMINOPHEN\HYDROCODONE BITARTRATE
     Indication: DENTAL OPERATION
     Dosage: UNK
     Route: 065
     Dates: start: 1997
  2. HYDROCODONE BITARTRATE (SIMILAR TO NDA 206627) [Suspect]
     Active Substance: HYDROCODONE BITARTRATE
     Indication: PRODUCT USED FOR UNKNOWN INDICATION
     Route: 048

REACTIONS (9)
  - Detoxification [Unknown]
  - Drug dependence [Unknown]
  - Overdose [Unknown]
  - Death [Fatal]
  - Hyperhidrosis [Unknown]
  - Withdrawal syndrome [Unknown]
  - Constipation [Unknown]
  - Pain [Unknown]
  - Hospitalisation [Recovered/Resolved]

NARRATIVE: CASE EVENT DATE: 2013
